FAERS Safety Report 23561984 (Version 1)
Quarter: 2024Q1

REPORT INFORMATION
  Report Type: Spontaneous
  Country: KR (occurrence: KR)
  Receive Date: 20240226
  Receipt Date: 20240226
  Transmission Date: 20240410
  Serious: Yes (Other)
  Sender: FDA-Public Use
  Company Number: KR-BAYER-2024A027245

PATIENT
  Age: 64 Year
  Sex: Male

DRUGS (1)
  1. XARELTO [Suspect]
     Active Substance: RIVAROXABAN
     Indication: Portal vein thrombosis
     Dosage: 0.5 DF
     Route: 048
     Dates: start: 20200217

REACTIONS (2)
  - Dermatitis exfoliative [Unknown]
  - Pruritus [Unknown]

NARRATIVE: CASE EVENT DATE: 20200217
